FAERS Safety Report 8780535 (Version 2)
Quarter: 2012Q4

REPORT INFORMATION
  Report Type: 
  Country: US (occurrence: US)
  Receive Date: 20120913
  Receipt Date: 20121002
  Transmission Date: 20130627
  Serious: No
  Sender: FDA-Public Use
  Company Number: US-PFIZER INC-2012222601

PATIENT
  Age: 57 Year
  Sex: Female

DRUGS (1)
  1. INLYTA [Suspect]
     Dosage: 5 mg, 2x/day

REACTIONS (5)
  - Constipation [Unknown]
  - Fatigue [Unknown]
  - Decreased appetite [Unknown]
  - Dysphonia [Unknown]
  - Photophobia [Unknown]
